FAERS Safety Report 13547265 (Version 2)
Quarter: 2017Q2

REPORT INFORMATION
  Report Type: Spontaneous
  Country: US (occurrence: US)
  Receive Date: 20170515
  Receipt Date: 20170615
  Transmission Date: 20170830
  Serious: Yes (Death, Hospitalization)
  Sender: FDA-Public Use
  Company Number: US-ACTELION-A-NJ2017-153799

PATIENT
  Age: 14 Year
  Sex: Female

DRUGS (4)
  1. SILDENAFIL. [Concomitant]
     Active Substance: SILDENAFIL
     Dosage: 20 MG, TID
     Dates: start: 20160201
  2. ORENITRAM [Concomitant]
     Active Substance: TREPROSTINIL
     Dosage: 4 MG, TID
     Dates: start: 20160211
  3. TRACLEER [Suspect]
     Active Substance: BOSENTAN
     Indication: PULMONARY ARTERIAL HYPERTENSION
     Dosage: 62.5 MG, BID
     Route: 048
     Dates: start: 20160115
  4. TYVASO [Concomitant]
     Active Substance: TREPROSTINIL
     Dosage: 13 PUFF, QID
     Dates: start: 20160215, end: 20170510

REACTIONS (2)
  - Pulmonary haemorrhage [Not Recovered/Not Resolved]
  - Death [Fatal]

NARRATIVE: CASE EVENT DATE: 20170410
